FAERS Safety Report 8190388-0 (Version None)
Quarter: 2012Q1

REPORT INFORMATION
  Report Type: 
  Country: None (occurrence: None)
  Receive Date: 20120307
  Receipt Date: 20120301
  Transmission Date: 20120608
  Serious: Yes (Hospitalization, Other)
  Sender: FDA-Public Use
  Company Number: US-CELGENEUS-163-21880-10092834

PATIENT
  Age: 63 Year
  Sex: Male

DRUGS (7)
  1. REVLIMID [Suspect]
     Dosage: 25 MILLIGRAM
     Route: 048
     Dates: start: 20100928, end: 20101006
  2. FLUCONAZOLE [Concomitant]
     Indication: PROPHYLAXIS
     Route: 065
  3. IDARUBICIN HCL [Suspect]
     Dosage: 12 MILLIGRAM/SQ. METER
     Route: 041
     Dates: start: 20100920, end: 20100922
  4. ZOSYN [Concomitant]
     Indication: PROPHYLAXIS
     Route: 065
     Dates: start: 20101018
  5. CYTARABINE [Suspect]
     Dosage: 1.5G/M2
     Route: 041
     Dates: start: 20100920, end: 20100923
  6. VALTREX [Concomitant]
     Indication: PROPHYLAXIS
     Route: 065
  7. REVLIMID [Suspect]
     Dosage: 25 MILLIGRAM
     Route: 048
     Dates: start: 20100916

REACTIONS (5)
  - CLOSTRIDIUM DIFFICILE COLITIS [None]
  - LYMPHOCYTE COUNT DECREASED [None]
  - WHITE BLOOD CELL COUNT DECREASED [None]
  - DERMATITIS BULLOUS [None]
  - FEBRILE NEUTROPENIA [None]
